FAERS Safety Report 6608971-X (Version None)
Quarter: 2010Q1

REPORT INFORMATION
  Report Type: 
  Country: None (occurrence: None)
  Receive Date: 20100301
  Receipt Date: 20100222
  Transmission Date: 20100710
  Serious: Yes (Other)
  Sender: FDA-Public Use
  Company Number: CA-PFIZER INC-2010023319

PATIENT
  Sex: Male

DRUGS (8)
  1. DETROL LA [Suspect]
     Indication: HYPERTONIC BLADDER
     Dosage: UNK
     Dates: start: 20090401
  2. METFORMIN [Concomitant]
     Dosage: 500 MG, 3X/DAY
     Route: 048
  3. FLOMAX [Concomitant]
     Dosage: 0.4 MG, 1X/DAY
     Route: 048
  4. LANSOPRAZOLE [Concomitant]
     Dosage: 30 MG, 1X/DAY
     Route: 048
  5. ASPIRIN [Concomitant]
     Dosage: 81 MG, 1X/DAY
     Route: 048
  6. COVERSYL [Concomitant]
     Dosage: 4 MG, 1X/DAY
     Route: 048
  7. ADALAT CC [Concomitant]
     Dosage: 30 MG, 1X/DAY
     Route: 048
  8. SYNTHROID [Concomitant]
     Dosage: 0.075 MG, 1X/DAY
     Route: 048

REACTIONS (2)
  - CEREBROVASCULAR ACCIDENT [None]
  - DRUG INEFFECTIVE [None]
